FAERS Safety Report 15607531 (Version 1)
Quarter: 2018Q4

REPORT INFORMATION
  Report Type: Spontaneous
  Country: GB (occurrence: GB)
  Receive Date: 20181112
  Receipt Date: 20181112
  Transmission Date: 20190205
  Serious: Yes (Other)
  Sender: FDA-Public Use
  Company Number: GB-PFIZER INC-2018458158

PATIENT
  Age: 53 Year
  Sex: Female
  Weight: 59 kg

DRUGS (7)
  1. LEVOTHYROXINE. [Concomitant]
     Active Substance: LEVOTHYROXINE
     Dosage: 1 DF, 1X/DAY
     Dates: start: 20170928
  2. CINNARIZINE [Concomitant]
     Active Substance: CINNARIZINE
     Dosage: 6 DF, 1X/DAY
     Dates: start: 20180208
  3. AMLODIPINE BESILATE [Suspect]
     Active Substance: AMLODIPINE BESYLATE
     Dosage: UNK
     Dates: start: 20180214, end: 20180217
  4. CERELLE [Concomitant]
     Active Substance: DESOGESTREL
     Dosage: 1 DF, 1X/DAY
     Dates: start: 20170928
  5. LANSOPRAZOLE. [Concomitant]
     Active Substance: LANSOPRAZOLE
     Dosage: 1 DF, 1X/DAY PRN
     Dates: start: 20180208
  6. METFORMIN [Concomitant]
     Active Substance: METFORMIN HYDROCHLORIDE
     Dosage: 2 DF, 1X/DAY (WITH MEALS)
     Dates: start: 20170928
  7. SIMVASTATIN. [Concomitant]
     Active Substance: SIMVASTATIN
     Dosage: 1 DF, 1X/DAY (AT NIGHT)
     Dates: start: 20170928

REACTIONS (2)
  - Palpitations [Recovered/Resolved]
  - Headache [Recovered/Resolved]

NARRATIVE: CASE EVENT DATE: 20180215
